FAERS Safety Report 9321506 (Version 3)
Quarter: 2014Q2

REPORT INFORMATION
  Report Type: Spontaneous
  Country: JP (occurrence: JP)
  Receive Date: 20130531
  Receipt Date: 20140409
  Transmission Date: 20141212
  Serious: Yes (Hospitalization, Disabling, Other)
  Sender: FDA-Public Use
  Company Number: PHHY2013JP054698

PATIENT
  Age: 57 Year
  Sex: Male

DRUGS (7)
  1. BASILIXIMAB [Suspect]
     Indication: PROPHYLAXIS AGAINST TRANSPLANT REJECTION
     Dosage: 20 MG, UNK
     Route: 042
     Dates: start: 20130418, end: 20130418
  2. BASILIXIMAB [Suspect]
     Dosage: 20 MG, DAILY
     Route: 042
     Dates: start: 20130422, end: 20130422
  3. MILRINONE [Concomitant]
     Dosage: UNK
  4. CORTICOSTEROIDS [Concomitant]
     Dosage: UNK
  5. TACROLIMUS [Concomitant]
  6. MYCOPHENOLATE MOFETIL [Concomitant]
     Route: 048
  7. METHYLPREDNISOLONE [Concomitant]

REACTIONS (6)
  - Acute lung injury [Recovered/Resolved]
  - Pleural effusion [Unknown]
  - Pulmonary oedema [Recovered/Resolved]
  - Dyspnoea [Unknown]
  - Myocardial strain [Recovered/Resolved]
  - Ejection fraction decreased [Recovered/Resolved]
